FAERS Safety Report 4302732-2 (Version None)
Quarter: 2004Q1

REPORT INFORMATION
  Report Type: 
  Country: None (occurrence: None)
  Receive Date: 20040224
  Receipt Date: 20031213
  Transmission Date: 20041129
  Serious: Yes (Hospitalization, Other)
  Sender: FDA-Public Use
  Company Number: PHFR2003GB04793

PATIENT
  Sex: Male

DRUGS (3)
  1. CLOZARIL [Suspect]
     Indication: MEDICATION ERROR
     Dosage: 350MG/ERROR
     Route: 048
     Dates: start: 20031213
  2. EPANUTIN                                /UNK/ [Concomitant]
     Indication: EPILEPSY
     Route: 065
  3. ANTIDEPRESSANTS [Concomitant]
     Route: 065

REACTIONS (4)
  - COMA [None]
  - CONVULSION [None]
  - MEDICATION ERROR [None]
  - TACHYCARDIA [None]
